FAERS Safety Report 7706277-9 (Version None)
Quarter: 2011Q3

REPORT INFORMATION
  Report Type: 
  Country: None (occurrence: None)
  Receive Date: 20110824
  Receipt Date: 20110817
  Transmission Date: 20111222
  Serious: Yes (Hospitalization, Disabling)
  Sender: FDA-Public Use
  Company Number: GB-ROCHE-797273

PATIENT
  Sex: Female
  Weight: 93 kg

DRUGS (7)
  1. BEVACIZUMAB [Suspect]
     Indication: BREAST CANCER
     Route: 042
     Dates: end: 20110817
  2. DIFFLAM [Concomitant]
     Dates: start: 20110807
  3. LANSOPRAZOLE [Concomitant]
     Dates: start: 20110721
  4. CITALOPRAM HYDROBROMIDE [Concomitant]
     Dates: start: 20110806
  5. PACLITAXEL [Suspect]
     Indication: BREAST CANCER
     Route: 042
     Dates: end: 20110801
  6. OXYCONTIN [Concomitant]
     Dates: start: 20110721
  7. OXYCODONE HCL [Concomitant]
     Dates: start: 20110721

REACTIONS (1)
  - ATAXIA [None]
